FAERS Safety Report 15195085 (Version 1)
Quarter: 2018Q3

REPORT INFORMATION
  Report Type: Spontaneous
  Country: US (occurrence: US)
  Receive Date: 20180725
  Receipt Date: 20180725
  Transmission Date: 20181010
  Serious: No
  Sender: FDA-Public Use
  Company Number: US-SA-2018SA202044

PATIENT
  Sex: Female

DRUGS (1)
  1. KEVZARA [Suspect]
     Active Substance: SARILUMAB
     Dosage: UNK UNK, QOW
     Route: 058
     Dates: start: 20180627, end: 20180717

REACTIONS (3)
  - Rash [Unknown]
  - Swelling face [Unknown]
  - Injection site pruritus [Unknown]
